FAERS Safety Report 16035014 (Version 2)
Quarter: 2019Q2

REPORT INFORMATION
  Report Type: Spontaneous
  Country: US (occurrence: US)
  Receive Date: 20190305
  Receipt Date: 20190425
  Transmission Date: 20190711
  Serious: No
  Sender: FDA-Public Use
  Company Number: US-MYLANLABS-2019M1014772

PATIENT
  Sex: Male
  Weight: 73 kg

DRUGS (2)
  1. OLMESARTAN MEDOXOMIL TABLETS [Suspect]
     Active Substance: OLMESARTAN MEDOXOMIL
     Indication: BLOOD PRESSURE ABNORMAL
     Dosage: 1 DOSAGE FORM, QD
     Route: 048
  2. ATORVASTATIN [Concomitant]
     Active Substance: ATORVASTATIN
     Dosage: UNK

REACTIONS (3)
  - Blood pressure systolic increased [Recovered/Resolved]
  - Product substitution issue [Unknown]
  - Drug ineffective [Unknown]
